FAERS Safety Report 4957607-2 (Version None)
Quarter: 2006Q1

REPORT INFORMATION
  Report Type: 
  Country: None (occurrence: None)
  Receive Date: 20060324
  Receipt Date: 20060310
  Transmission Date: 20060701
  Serious: Yes (Other)
  Sender: FDA-Public Use
  Company Number: 2006S1002108

PATIENT
  Age: 41 Year
  Sex: Female
  Weight: 68.0396 kg

DRUGS (19)
  1. FENTANYL TRANSDERMAL SYSTEM [Suspect]
     Indication: SCOLIOSIS
     Dosage: 50 UG/HR; QOD; TRANS
     Route: 062
     Dates: start: 20050201
  2. CLONAZEPAM [Concomitant]
  3. DULOXETINE [Concomitant]
  4. PARACETAMOL/DICHLORALPHENAZONE/ISOMETHEPTENE [Concomitant]
  5. PANTOPRAZOLE [Concomitant]
  6. PARACETAMOL/HYDROCODONE BITARTRATE [Concomitant]
  7. QUETIAPINE FUMARATE [Concomitant]
  8. METOPROLOL SUCCINATE [Concomitant]
  9. FERROUS SULFATE TAB [Concomitant]
  10. FERROUS SULFATE/VITAMINS NOS [Concomitant]
  11. VITAMINS NOS [Concomitant]
  12. ETHINYLESTRADIOL/LEVONORGESTREL [Concomitant]
  13. HYOSCINE METHOBROMIDE [Concomitant]
  14. MODAFINIL [Concomitant]
  15. ALPRAZOLAM [Concomitant]
  16. TOPIRAMATE [Concomitant]
  17. AZELASTINE HYDROCHLORIDE [Concomitant]
  18. CALCIUM GLUCONATE [Concomitant]
  19. ATROPINE SULFATE/DIPHENOXYLATE HYDROCHLORIDE [Concomitant]

REACTIONS (13)
  - AMNESIA [None]
  - APPLICATION SITE ERYTHEMA [None]
  - CONFUSIONAL STATE [None]
  - DIZZINESS [None]
  - DRUG ABUSER [None]
  - DRUG SCREEN POSITIVE [None]
  - FALL [None]
  - HEAD INJURY [None]
  - HEADACHE [None]
  - HYPERHIDROSIS [None]
  - NAUSEA [None]
  - PAIN [None]
  - PHARMACEUTICAL PRODUCT COMPLAINT [None]
